FAERS Safety Report 16665314 (Version 1)
Quarter: 2019Q3

REPORT INFORMATION
  Report Type: Spontaneous
  Country: DE (occurrence: DE)
  Receive Date: 20190803
  Receipt Date: 20190803
  Transmission Date: 20191004
  Serious: Yes (Other)
  Sender: FDA-Public Use
  Company Number: DE-AUROBINDO-AUR-APL-2019-030193

PATIENT

DRUGS (4)
  1. BISOPROLOL [Interacting]
     Active Substance: BISOPROLOL
     Dosage: UNK UNK, ONCE A DAY
     Route: 065
     Dates: start: 20190624
  2. BISOPROLOL [Suspect]
     Active Substance: BISOPROLOL
     Indication: TACHYCARDIA
     Dosage: 1.25 MILLIGRAM, ONCE A DAY, 1.25 MG, QD
     Route: 065
  3. BISOPROLOL [Interacting]
     Active Substance: BISOPROLOL
     Dosage: 1.5 MILLIGRAM, ONCE A DAY
     Route: 065
     Dates: end: 20190615
  4. FOSTER [Interacting]
     Active Substance: BECLOMETHASONE\FORMOTEROL
     Indication: ASTHMA
     Dosage: 1 DF, BID, 2 DF, QD
     Route: 055
     Dates: start: 20190429, end: 20190615

REACTIONS (18)
  - Decreased appetite [Recovered/Resolved]
  - Paraesthesia [Recovered/Resolved]
  - Extrasystoles [Recovered/Resolved]
  - Tremor [Recovered/Resolved]
  - Dizziness [Recovered/Resolved]
  - Polyneuropathy [Recovered/Resolved]
  - Drug interaction [Recovered/Resolved]
  - Pain in extremity [Recovered/Resolved]
  - Exercise tolerance decreased [Recovered/Resolved]
  - Malaise [Recovered/Resolved]
  - Apathy [Recovered/Resolved]
  - Hypoaesthesia [Recovered/Resolved]
  - Heart rate increased [Recovered/Resolved]
  - Hypotension [Recovered/Resolved]
  - Peripheral swelling [Not Recovered/Not Resolved]
  - Panic attack [Recovered/Resolved]
  - Restlessness [Recovered/Resolved]
  - Muscle tightness [Recovered/Resolved]

NARRATIVE: CASE EVENT DATE: 20190429
